FAERS Safety Report 10011572 (Version 1)
Quarter: 2014Q1

REPORT INFORMATION
  Report Type: Spontaneous
  Country: US (occurrence: None)
  Receive Date: 20140313
  Receipt Date: 20140313
  Transmission Date: 20141002
  Serious: Yes (Hospitalization)
  Sender: FDA-Public Use
  Company Number: None

PATIENT
  Age: 44 Year
  Sex: Male
  Weight: 93 kg

DRUGS (4)
  1. CHOLECALCIFEROL [Suspect]
     Indication: HYPOVITAMINOSIS
     Dosage: 50,000 IU 1/MO ORAL
     Route: 048
     Dates: start: 20140208
  2. CITALOPRAM [Concomitant]
  3. LISINOPRIL [Concomitant]
  4. SEROQUEL [Concomitant]

REACTIONS (2)
  - Upper respiratory tract infection [None]
  - Febrile neutropenia [None]
